FAERS Safety Report 6934019-3 (Version None)
Quarter: 2010Q3

REPORT INFORMATION
  Report Type: 
  Country: None (occurrence: None)
  Receive Date: 20100820
  Receipt Date: 20100809
  Transmission Date: 20110219
  Serious: Yes (Hospitalization, Other)
  Sender: FDA-Public Use
  Company Number: US-PFIZER INC-2009272900

PATIENT
  Sex: Female
  Weight: 86.168 kg

DRUGS (3)
  1. XALATAN [Suspect]
     Indication: OCULAR HYPERTENSION
     Dosage: EVERY NIGHT, 1 DROP IN LOWER CUL-DE SAC
     Dates: start: 20090101
  2. XALATAN [Suspect]
     Indication: INTRAOCULAR PRESSURE INCREASED
  3. XALATAN [Suspect]
     Indication: GLAUCOMA

REACTIONS (2)
  - ABDOMINAL DISCOMFORT [None]
  - TEMPOROMANDIBULAR JOINT SYNDROME [None]
